FAERS Safety Report 7091797-3 (Version None)
Quarter: 2010Q4

REPORT INFORMATION
  Report Type: 
  Country: None (occurrence: None)
  Receive Date: 20101101
  Receipt Date: 20101022
  Transmission Date: 20110411
  Serious: Yes (Hospitalization)
  Sender: FDA-Public Use
  Company Number: WAES 1010USA02675

PATIENT
  Age: 67 Year
  Sex: Male
  Weight: 108.8633 kg

DRUGS (18)
  1. DECADRON [Suspect]
     Indication: PRODUCT USED FOR UNKNOWN INDICATION
     Dosage: 2 MG/DAILY/PO, 8 MG/DAILY/PO
     Route: 048
  2. TRABECTEDIN [Suspect]
     Indication: LEIOMYOSARCOMA
     Dosage: 1.5 MG/M[2]/IV, 1.2 MG/M[2]/IV
     Route: 042
     Dates: start: 20100409, end: 20100410
  3. TRABECTEDIN [Suspect]
     Indication: LEIOMYOSARCOMA
     Dosage: 1.5 MG/M[2]/IV, 1.2 MG/M[2]/IV
     Route: 042
     Dates: start: 20100430, end: 20100501
  4. COUMADIN [Concomitant]
  5. DESYREL [Concomitant]
  6. LASIX [Concomitant]
  7. NEUPOGEN [Concomitant]
  8. ZYPREXA [Concomitant]
  9. [COMPOSITION UNSPECIFIED] [Concomitant]
  10. BENAZEPRIL HYDROCHLORIDE [Concomitant]
  11. CAPTOPRIL [Concomitant]
  12. DILTIAZEM HYDROCHLORIDE [Concomitant]
  13. LOPERAMIDE HYDROCHLORIDE [Concomitant]
  14. LORAZEPAM [Concomitant]
  15. METOPROLOL SUCCINATE [Concomitant]
  16. METOPROLOL SUCCINATE [Concomitant]
  17. PREDNISONE [Concomitant]
  18. PROPYLTHIOURACIL [Concomitant]

REACTIONS (4)
  - BLOOD ALKALINE PHOSPHATASE INCREASED [None]
  - DRUG TOXICITY [None]
  - ENCEPHALOPATHY [None]
  - FALL [None]
